FAERS Safety Report 14842251 (Version 4)
Quarter: 2018Q2

REPORT INFORMATION
  Report Type: Spontaneous
  Country: FR (occurrence: FR)
  Receive Date: 20180503
  Receipt Date: 20180619
  Transmission Date: 20180711
  Serious: Yes (Hospitalization, Other)
  Sender: FDA-Public Use
  Company Number: FR-AUROBINDO-AUR-APL-2018-004378

PATIENT
  Age: 88 Year
  Sex: Male

DRUGS (56)
  1. SERENOA REPENS [Concomitant]
     Active Substance: SERENOA REPENS WHOLE
     Dosage: ()
     Route: 065
  2. EPINITRIL [Concomitant]
     Active Substance: NITROGLYCERIN
     Dosage: UNK ()
     Route: 042
  3. BISOPROLOL [Concomitant]
     Active Substance: BISOPROLOL
     Dosage: UNK ()
     Route: 065
  4. AMLODIPINE [Concomitant]
     Active Substance: AMLODIPINE BESYLATE
     Dosage: UNK ()
  5. CALCIPARINE [Concomitant]
     Active Substance: HEPARIN CALCIUM
     Dosage: UNK ()
  6. RAMIPRIL. [Suspect]
     Active Substance: RAMIPRIL
     Indication: HYPERTENSION
     Dosage: UNK ()
     Route: 048
  7. EZETIMIBE. [Concomitant]
     Active Substance: EZETIMIBE
     Indication: PRODUCT USED FOR UNKNOWN INDICATION
     Dosage: ()
     Route: 065
  8. SERENOA REPENS [Concomitant]
     Active Substance: SERENOA REPENS WHOLE
     Dosage: ()
     Route: 065
  9. EPINITRIL [Concomitant]
     Active Substance: NITROGLYCERIN
     Dosage: ()
     Route: 042
  10. EPINITRIL [Concomitant]
     Active Substance: NITROGLYCERIN
     Dosage: UNK ()
     Route: 042
  11. EPINITRIL [Concomitant]
     Active Substance: NITROGLYCERIN
     Dosage: UNK ()
     Route: 042
  12. BISOPROLOL [Concomitant]
     Active Substance: BISOPROLOL
     Dosage: UNK ()
  13. AMLODIPINE [Concomitant]
     Active Substance: AMLODIPINE BESYLATE
     Dosage: UNK ()
  14. ALFUZOSIN [Concomitant]
     Active Substance: ALFUZOSIN
     Indication: PRODUCT USED FOR UNKNOWN INDICATION
     Dosage: 10 MG ()
     Route: 065
  15. EPINITRIL [Concomitant]
     Active Substance: NITROGLYCERIN
     Dosage: UNK ()
     Route: 042
  16. BISOPROLOL [Concomitant]
     Active Substance: BISOPROLOL
     Dosage: ()
     Route: 065
  17. CLOPIDOGREL [Concomitant]
     Active Substance: CLOPIDOGREL BISULFATE
     Dosage: ()
     Route: 065
  18. CALCIPARINE [Concomitant]
     Active Substance: HEPARIN CALCIUM
     Dosage: ()
     Route: 065
  19. EZETROL [Concomitant]
     Active Substance: EZETIMIBE
     Indication: HYPERCHOLESTEROLAEMIA
     Dosage: UNK ()
     Route: 065
     Dates: start: 20151231
  20. FUROSEMIDE. [Suspect]
     Active Substance: FUROSEMIDE
     Indication: CARDIAC FAILURE
     Dosage: UNK
     Route: 065
  21. EZETIMIBE. [Concomitant]
     Active Substance: EZETIMIBE
     Dosage: UNK ()
     Route: 065
     Dates: start: 20151231
  22. URAPIDIL [Concomitant]
     Active Substance: URAPIDIL
     Dosage: UNK ()
     Route: 042
  23. BISOPROLOL [Concomitant]
     Active Substance: BISOPROLOL
     Dosage: UNK ()
  24. BISOPROLOL [Concomitant]
     Active Substance: BISOPROLOL
     Dosage: UNK ()
  25. CLOPIDOGREL [Concomitant]
     Active Substance: CLOPIDOGREL BISULFATE
     Indication: PRODUCT USED FOR UNKNOWN INDICATION
     Dosage: ()
     Route: 065
  26. PERMIXON [Concomitant]
     Active Substance: HERBALS\SAW PALMETTO
     Indication: BENIGN PROSTATIC HYPERPLASIA
     Dosage: UNK ()
  27. PERMIXON [Concomitant]
     Active Substance: HERBALS\SAW PALMETTO
     Dosage: UNK ()
  28. PLAVIX [Concomitant]
     Active Substance: CLOPIDOGREL BISULFATE
     Indication: PRODUCT USED FOR UNKNOWN INDICATION
     Dosage: UNK ()
     Route: 065
     Dates: start: 20151223
  29. LASILIX                            /00032601/ [Suspect]
     Active Substance: FUROSEMIDE
     Indication: CARDIAC FAILURE
     Dosage: UNK ()
     Route: 048
     Dates: start: 20151228, end: 20160121
  30. EPINITRIL [Concomitant]
     Active Substance: NITROGLYCERIN
     Indication: PRODUCT USED FOR UNKNOWN INDICATION
     Dosage: ()
     Route: 042
  31. URAPIDIL [Concomitant]
     Active Substance: URAPIDIL
     Indication: PRODUCT USED FOR UNKNOWN INDICATION
     Dosage: ()
     Route: 042
  32. URAPIDIL [Concomitant]
     Active Substance: URAPIDIL
     Dosage: ()
     Route: 042
  33. URAPIDIL [Concomitant]
     Active Substance: URAPIDIL
     Dosage: UNK ()
     Route: 042
  34. AMLODIPINE [Concomitant]
     Active Substance: AMLODIPINE BESYLATE
     Dosage: ()
     Route: 065
  35. AMLODIPINE [Concomitant]
     Active Substance: AMLODIPINE BESYLATE
     Dosage: UNK ()
     Route: 065
  36. CLOPIDOGREL [Concomitant]
     Active Substance: CLOPIDOGREL BISULFATE
     Dosage: UNK ()
  37. CLOPIDOGREL [Concomitant]
     Active Substance: CLOPIDOGREL BISULFATE
     Dosage: UNK ()
     Route: 065
     Dates: start: 20151223
  38. CALCIPARINE [Concomitant]
     Active Substance: HEPARIN CALCIUM
     Dosage: UNK ()
  39. CALCIPARINE [Concomitant]
     Active Substance: HEPARIN CALCIUM
     Dosage: UNK ()
     Route: 065
  40. KAYEXALATE [Concomitant]
     Active Substance: SODIUM POLYSTYRENE SULFONATE
     Indication: HYPERKALAEMIA
     Dosage: UNK ()
     Route: 065
     Dates: start: 20151229
  41. EZETIMIBE. [Concomitant]
     Active Substance: EZETIMIBE
     Indication: HYPERCHOLESTEROLAEMIA
     Dosage: ()
     Route: 065
  42. URAPIDIL [Concomitant]
     Active Substance: URAPIDIL
     Dosage: UNK ()
     Route: 042
  43. BISOPROLOL [Concomitant]
     Active Substance: BISOPROLOL
     Indication: PRODUCT USED FOR UNKNOWN INDICATION
     Dosage: ()
     Route: 065
  44. CALCIPARINE [Concomitant]
     Active Substance: HEPARIN CALCIUM
     Dosage: UNK ()
  45. XATRAL                             /00975301/ [Suspect]
     Active Substance: ALFUZOSIN
     Indication: BENIGN PROSTATIC HYPERPLASIA
     Dosage: 10 MG, UNK
     Dates: end: 20160121
  46. ASPIRIN                            /00002701/ [Concomitant]
     Active Substance: ASPIRIN
     Indication: PRODUCT USED FOR UNKNOWN INDICATION
     Dosage: 75 MG ()
     Route: 065
  47. SERENOA REPENS [Concomitant]
     Active Substance: SERENOA REPENS WHOLE
     Indication: PRODUCT USED FOR UNKNOWN INDICATION
     Dosage: ()
     Route: 065
  48. URAPIDIL [Concomitant]
     Active Substance: URAPIDIL
     Dosage: UNK ()
     Route: 042
  49. AMLODIPINE [Concomitant]
     Active Substance: AMLODIPINE BESYLATE
     Indication: PRODUCT USED FOR UNKNOWN INDICATION
     Dosage: ()
     Route: 065
  50. AMLODIPINE [Concomitant]
     Active Substance: AMLODIPINE BESYLATE
     Dosage: UNK ()
  51. KARDEGIC [Concomitant]
     Active Substance: ASPIRIN DL-LYSINE
     Indication: MYOCARDIAL ISCHAEMIA
     Dosage: 75 MG, UNK
     Route: 065
  52. KARDEGIC [Concomitant]
     Active Substance: ASPIRIN DL-LYSINE
     Dosage: 75 MG, UNK
  53. ATORVASTATIN [Suspect]
     Active Substance: ATORVASTATIN
     Indication: PRODUCT USED FOR UNKNOWN INDICATION
     Dosage: UNK
     Route: 065
  54. CLOPIDOGREL [Concomitant]
     Active Substance: CLOPIDOGREL BISULFATE
     Dosage: UNK ()
  55. CLOPIDOGREL [Concomitant]
     Active Substance: CLOPIDOGREL BISULFATE
     Dosage: UNK ()
  56. CALCIPARINE [Concomitant]
     Active Substance: HEPARIN CALCIUM
     Indication: PRODUCT USED FOR UNKNOWN INDICATION
     Dosage: ()
     Route: 065

REACTIONS (5)
  - Pyrexia [Unknown]
  - Agranulocytosis [Recovered/Resolved]
  - Inflammation [Unknown]
  - Pain in extremity [Unknown]
  - Rhabdomyolysis [Unknown]

NARRATIVE: CASE EVENT DATE: 20160118
